FAERS Safety Report 14313332 (Version 2)
Quarter: 2018Q2

REPORT INFORMATION
  Report Type: Spontaneous
  Country: AU (occurrence: AU)
  Receive Date: 20171221
  Receipt Date: 20180516
  Transmission Date: 20180711
  Serious: No
  Sender: FDA-Public Use
  Company Number: AU-LPDUSPRD-20171772

PATIENT
  Age: 41 Year
  Sex: Female
  Weight: 77 kg

DRUGS (2)
  1. FERINJECT [Suspect]
     Active Substance: FERRIC CARBOXYMALTOSE
     Dosage: UNKNOWN
     Route: 041
     Dates: start: 20171208
  2. ESMYA [Suspect]
     Active Substance: ULIPRISTAL ACETATE
     Dosage: UNKNOWN
     Route: 065
     Dates: start: 20170926, end: 20171204

REACTIONS (2)
  - Off label use [Unknown]
  - No adverse event [Unknown]
